FAERS Safety Report 10613694 (Version 1)
Quarter: 2014Q4

REPORT INFORMATION
  Report Type: Spontaneous
  Country: US (occurrence: US)
  Receive Date: 20141128
  Receipt Date: 20141128
  Transmission Date: 20150529
  Serious: Yes (Other)
  Sender: FDA-Public Use
  Company Number: US-GLAXOSMITHKLINE-A1054327A

PATIENT

DRUGS (2)
  1. LAMICTAL [Suspect]
     Active Substance: LAMOTRIGINE
     Indication: SEIZURE
     Dosage: 200 MG TABLETS
     Route: 065
     Dates: start: 20090209
  2. WELLBUTRIN SR [Suspect]
     Active Substance: BUPROPION HYDROCHLORIDE
     Indication: PRODUCT USED FOR UNKNOWN INDICATION
     Dosage: 150 MG TABLETS
     Route: 065
     Dates: start: 20091030

REACTIONS (1)
  - Liver injury [Unknown]
